FAERS Safety Report 7525878-4 (Version None)
Quarter: 2011Q2

REPORT INFORMATION
  Report Type: 
  Country: None (occurrence: None)
  Receive Date: 20110606
  Receipt Date: 20110519
  Transmission Date: 20111010
  Serious: Yes (Hospitalization, Congenital Anomaly)
  Sender: FDA-Public Use
  Company Number: A0930137A

PATIENT
  Sex: Male

DRUGS (1)
  1. PAXIL [Suspect]
     Indication: DEPRESSION
     Route: 064

REACTIONS (6)
  - ENCEPHALOPATHY [None]
  - DEVELOPMENTAL DELAY [None]
  - MICROCEPHALY [None]
  - DRUG EXPOSURE DURING PREGNANCY [None]
  - EPILEPSY CONGENITAL [None]
  - PATENT DUCTUS ARTERIOSUS [None]
